FAERS Safety Report 6532505-1 (Version None)
Quarter: 2009Q4

REPORT INFORMATION
  Report Type: 
  Country: None (occurrence: None)
  Receive Date: 20091224
  Receipt Date: 20091214
  Transmission Date: 20100525
  Serious: Yes (Other)
  Sender: FDA-Public Use
  Company Number: BVT-000440

PATIENT
  Age: 47 Year
  Sex: Male

DRUGS (8)
  1. KINERET [Suspect]
     Indication: STILL'S DISEASE ADULT ONSET
     Dosage: (100 MG QD SUBCUTANEOUS)
     Route: 058
     Dates: start: 20090910, end: 20091030
  2. OMEPRAZOLE [Concomitant]
  3. PREDNISONE [Concomitant]
  4. FOLIC ACID [Concomitant]
  5. METHOTREXATE [Concomitant]
  6. PLAQUENIL [Concomitant]
  7. INDOXEN [Concomitant]
  8. ISONIAZID [Concomitant]

REACTIONS (1)
  - LYMPHADENOPATHY [None]
